FAERS Safety Report 12783728 (Version 1)
Quarter: 2016Q3

REPORT INFORMATION
  Report Type: Spontaneous
  Country: US (occurrence: US)
  Receive Date: 20160927
  Receipt Date: 20160927
  Transmission Date: 20161109
  Serious: No
  Sender: FDA-Public Use
  Company Number: US-BAYER-2016-185094

PATIENT
  Sex: Female
  Weight: 90.7 kg

DRUGS (9)
  1. LEVEMIR [Concomitant]
     Active Substance: INSULIN DETEMIR
     Indication: DIABETES MELLITUS
     Dosage: UNK
     Route: 058
  2. METFORMIN [Concomitant]
     Active Substance: METFORMIN HYDROCHLORIDE
     Indication: DIABETES MELLITUS
     Dosage: 500 MG, TID
     Route: 048
  3. CIPRO [Suspect]
     Active Substance: CIPROFLOXACIN HYDROCHLORIDE
     Dosage: UNK
  4. ATENOLOL. [Concomitant]
     Active Substance: ATENOLOL
     Indication: HYPERTENSION
     Dosage: 50 MG, QD
     Route: 048
  5. ZYVOX [Suspect]
     Active Substance: LINEZOLID
     Indication: OSTEOMYELITIS
     Dosage: 600 MG, BID
     Route: 048
  6. JARDIANCE [Concomitant]
     Active Substance: EMPAGLIFLOZIN
     Indication: DIABETES MELLITUS
     Dosage: 25 MG, QD
     Route: 048
  7. LISINOPRIL. [Concomitant]
     Active Substance: LISINOPRIL
     Indication: HYPERTENSION
     Dosage: 20 MG, QD
     Route: 048
  8. NOVOLOG [Concomitant]
     Active Substance: INSULIN ASPART
     Indication: DIABETES MELLITUS
     Dosage: UNK
  9. GEMFIBROZIL. [Concomitant]
     Active Substance: GEMFIBROZIL
     Indication: DIABETES MELLITUS
     Dosage: 600 MG, QD
     Route: 048

REACTIONS (1)
  - Drug ineffective [None]
